FAERS Safety Report 4774858-0 (Version None)
Quarter: 2005Q3

REPORT INFORMATION
  Report Type: 
  Country: None (occurrence: None)
  Receive Date: 20050919
  Receipt Date: 20050912
  Transmission Date: 20060218
  Serious: Yes (Other)
  Sender: FDA-Public Use
  Company Number: 2005116701

PATIENT
  Age: 78 Year
  Sex: Female
  Weight: 61.2356 kg

DRUGS (5)
  1. ZOLOFT [Suspect]
     Indication: DEPRESSION
     Dosage: 200 MG (200 MG, 1 IN 1 D) ORAL
     Route: 048
     Dates: start: 20030101
  2. LIPITOR [Suspect]
     Indication: BLOOD CHOLESTEROL INCREASED
     Dosage: 5 MG (10 MG, 1 IN 1 D)
     Dates: start: 20040101
  3. ALL OTHER THERAPEUTIC PRODUCTS [Concomitant]
  4. VITAMINS [Concomitant]
  5. LORAZEPAM [Concomitant]

REACTIONS (4)
  - ANXIETY [None]
  - BLOOD CHOLESTEROL INCREASED [None]
  - HIP ARTHROPLASTY [None]
  - MUSCULOSKELETAL STIFFNESS [None]
